FAERS Safety Report 21696663 (Version 1)
Quarter: 2022Q4

REPORT INFORMATION
  Report Type: Spontaneous
  Country: PT (occurrence: PT)
  Receive Date: 20221207
  Receipt Date: 20221207
  Transmission Date: 20230112
  Serious: Yes (Hospitalization, Other)
  Sender: FDA-Public Use
  Company Number: None

PATIENT
  Age: 78 Year
  Sex: Male

DRUGS (3)
  1. LEVETIRACETAM [Suspect]
     Active Substance: LEVETIRACETAM
     Indication: Product used for unknown indication
     Dosage: UNK
  2. ALLOPURINOL [Suspect]
     Active Substance: ALLOPURINOL
     Indication: Product used for unknown indication
     Dosage: UNK
  3. PHENYTOIN [Suspect]
     Active Substance: PHENYTOIN
     Indication: Product used for unknown indication
     Dosage: UNK

REACTIONS (12)
  - Stevens-Johnson syndrome [Recovered/Resolved with Sequelae]
  - Ulcerative keratitis [Unknown]
  - Cough [Unknown]
  - Conjunctival hyperaemia [Unknown]
  - Drug hypersensitivity [Unknown]
  - Pain [Unknown]
  - Photophobia [Unknown]
  - Productive cough [Unknown]
  - Pyrexia [Unknown]
  - Odynophagia [Unknown]
  - Skin lesion [Unknown]
  - Visual acuity reduced [Unknown]
